FAERS Safety Report 14975437 (Version 1)
Quarter: 2018Q2

REPORT INFORMATION
  Report Type: Spontaneous
  Country: US (occurrence: US)
  Receive Date: 20180515
  Receipt Date: 20180515
  Transmission Date: 20180711
  Serious: Yes (Hospitalization)
  Sender: FDA-Public Use
  Company Number: None

PATIENT
  Sex: Male

DRUGS (15)
  1. PLAQUENIL [Concomitant]
     Active Substance: HYDROXYCHLOROQUINE SULFATE
  2. SAW PALMETTO [Concomitant]
     Active Substance: HERBALS\SAW PALMETTO
  3. TUMERIC [Concomitant]
     Active Substance: HERBALS\TURMERIC
  4. ZINC SULFATE [Concomitant]
     Active Substance: ZINC SULFATE\ZINC SULFATE ANHYDROUS
  5. GINKOBA [Concomitant]
     Active Substance: GINKGO
  6. MAGNESIUM [Concomitant]
     Active Substance: MAGNESIUM
  7. FENOFIBRATE. [Concomitant]
     Active Substance: FENOFIBRATE
  8. FOLIC ACID. [Concomitant]
     Active Substance: FOLIC ACID
  9. L-ARGININE [Concomitant]
     Active Substance: ARGININE
  10. LYSINE [Concomitant]
     Active Substance: LYSINE
  11. HUMIRA [Suspect]
     Active Substance: ADALIMUMAB
     Indication: RHEUMATOID ARTHRITIS
     Route: 058
     Dates: start: 20180425
  12. METHOTREXATE. [Concomitant]
     Active Substance: METHOTREXATE
  13. PREDNISONE. [Concomitant]
     Active Substance: PREDNISONE
  14. VITAMIN D [Concomitant]
     Active Substance: CHOLECALCIFEROL
  15. FINASTERIDE. [Concomitant]
     Active Substance: FINASTERIDE

REACTIONS (1)
  - Chest pain [None]
